FAERS Safety Report 17084941 (Version 1)
Quarter: 2019Q4

REPORT INFORMATION
  Report Type: Spontaneous
  Country: US (occurrence: US)
  Receive Date: 20191127
  Receipt Date: 20191127
  Transmission Date: 20200122
  Serious: No
  Sender: FDA-Public Use
  Company Number: US-INCYTE CORPORATION-2019IN011536

PATIENT

DRUGS (1)
  1. JAKAFI [Suspect]
     Active Substance: RUXOLITINIB
     Dosage: 10 MILLIGRAM, EVERY MORNING DAILY
     Route: 065
     Dates: start: 201708

REACTIONS (3)
  - Dry eye [Unknown]
  - Headache [Unknown]
  - Extra dose administered [Unknown]
